FAERS Safety Report 23066169 (Version 3)
Quarter: 2024Q1

REPORT INFORMATION
  Report Type: Report from Study
  Country: US (occurrence: US)
  Receive Date: 20231014
  Receipt Date: 20240118
  Transmission Date: 20240410
  Serious: Yes (Hospitalization)
  Sender: FDA-Public Use
  Company Number: US-002147023-NVSC2023US217907

PATIENT
  Sex: Female

DRUGS (4)
  1. ENTRESTO [Suspect]
     Active Substance: SACUBITRIL\VALSARTAN
     Indication: Product used for unknown indication
     Dosage: 49/51 MG, BID
     Route: 048
     Dates: start: 202308
  2. ENTRESTO [Suspect]
     Active Substance: SACUBITRIL\VALSARTAN
     Dosage: 24/26 MG, BID
     Route: 048
  3. ENTRESTO [Suspect]
     Active Substance: SACUBITRIL\VALSARTAN
     Dosage: 97/103MG, BID
     Route: 048
  4. ENALAPRIL [Suspect]
     Active Substance: ENALAPRIL
     Indication: Product used for unknown indication
     Dosage: UNK
     Route: 065

REACTIONS (13)
  - Brain natriuretic peptide increased [Not Recovered/Not Resolved]
  - Blood pressure abnormal [Not Recovered/Not Resolved]
  - Hyperhidrosis [Unknown]
  - Blood creatine increased [Not Recovered/Not Resolved]
  - Atrioventricular block [Unknown]
  - Fluid retention [Not Recovered/Not Resolved]
  - Ejection fraction decreased [Unknown]
  - Mental disorder [Recovered/Resolved]
  - Feeling cold [Unknown]
  - Heart valve incompetence [Unknown]
  - Cough [Unknown]
  - Nausea [Unknown]
  - Malaise [Unknown]
